FAERS Safety Report 11735222 (Version 3)
Quarter: 2018Q2

REPORT INFORMATION
  Report Type: Spontaneous
  Country: US (occurrence: US)
  Receive Date: 20151113
  Receipt Date: 20180405
  Transmission Date: 20180711
  Serious: Yes (Hospitalization, Disabling)
  Sender: FDA-Public Use
  Company Number: US-ENDO PHARMACEUTICALS INC.-2015-003950

PATIENT
  Age: 52 Year
  Sex: Male
  Weight: 54.48 kg

DRUGS (36)
  1. TESTIM [Suspect]
     Active Substance: TESTOSTERONE
     Indication: ANDROGEN REPLACEMENT THERAPY
     Dosage: UNK UNKNOWN, DAILY
     Route: 062
     Dates: start: 20081216, end: 20101123
  2. AXIRON [Suspect]
     Active Substance: TESTOSTERONE
     Indication: ANDROGEN REPLACEMENT THERAPY
     Dosage: 32 MG, DAILY (2 PUMPS DAILY)
     Route: 061
     Dates: start: 20130201
  3. PREDNISONE. [Concomitant]
     Active Substance: PREDNISONE
     Indication: PRODUCT USED FOR UNKNOWN INDICATION
     Dosage: UNK UNKNOWN, UNKNOWN
     Route: 065
  4. TESTOPEL [Suspect]
     Active Substance: TESTOSTERONE
     Dosage: 900 MG, EVERY 6 MONTHS (12 PELLETS)
     Route: 058
     Dates: start: 20140624
  5. TESTOPEL [Suspect]
     Active Substance: TESTOSTERONE
     Dosage: 750 MG, EVERY 6 MONTHS (10 PELLETS)
     Route: 058
     Dates: start: 20120202, end: 201204
  6. AXIRON [Suspect]
     Active Substance: TESTOSTERONE
     Dosage: UNK, UNK
     Route: 061
     Dates: start: 20121206
  7. TESTOSTERONE CYPIONATE. [Suspect]
     Active Substance: TESTOSTERONE CYPIONATE
     Indication: ANDROGEN REPLACEMENT THERAPY
     Dosage: 200 MG, SINGLE
     Route: 065
     Dates: start: 20141117
  8. ANDRODERM [Suspect]
     Active Substance: TESTOSTERONE
     Dosage: 2.5 MG, UNKNOWN
     Route: 062
     Dates: start: 20120530
  9. CLONAZEPAM. [Concomitant]
     Active Substance: CLONAZEPAM
     Indication: PRODUCT USED FOR UNKNOWN INDICATION
     Dosage: UNK UNKNOWN, UNKNOWN
     Route: 065
  10. SYNTHROID [Concomitant]
     Active Substance: LEVOTHYROXINE SODIUM
     Indication: PRODUCT USED FOR UNKNOWN INDICATION
     Dosage: UNK UNKNOWN, UNKNOWN
     Route: 065
  11. METRONIDAZOLE. [Concomitant]
     Active Substance: METRONIDAZOLE
     Indication: PRODUCT USED FOR UNKNOWN INDICATION
     Dosage: UNK UNKNOWN, UNKNOWN
     Route: 065
  12. ONDANSETRON [Concomitant]
     Active Substance: ONDANSETRON
     Indication: PRODUCT USED FOR UNKNOWN INDICATION
     Dosage: UNK UNKNOWN, UNKNOWN
     Route: 065
  13. SERTRALINE [Concomitant]
     Active Substance: SERTRALINE HYDROCHLORIDE
     Indication: PRODUCT USED FOR UNKNOWN INDICATION
     Dosage: UNK UNKNOWN, UNKNOWN
     Route: 065
  14. LORAZEPAM. [Concomitant]
     Active Substance: LORAZEPAM
     Indication: PRODUCT USED FOR UNKNOWN INDICATION
     Dosage: UNK UNKNOWN, UNKNOWN
     Route: 065
  15. DELATESTRYL [Suspect]
     Active Substance: TESTOSTERONE ENANTHATE
     Indication: ANDROGEN REPLACEMENT THERAPY
     Dosage: UNK UNKNOWN, UNKNOWN
     Route: 030
     Dates: start: 20140821
  16. METHYLPREDNISOLONE. [Concomitant]
     Active Substance: METHYLPREDNISOLONE
     Indication: PRODUCT USED FOR UNKNOWN INDICATION
     Dosage: UNK UNKNOWN, UNKNOWN
     Route: 065
  17. AXIRON [Suspect]
     Active Substance: TESTOSTERONE
     Dosage: UNK, UNK
     Route: 061
     Dates: start: 20121126
  18. TESTOSTERONE CYPIONATE. [Suspect]
     Active Substance: TESTOSTERONE CYPIONATE
     Dosage: UNK UNKNOWN, SINGLE
     Route: 065
     Dates: start: 20080418, end: 20081004
  19. TESTOPEL [Suspect]
     Active Substance: TESTOSTERONE
     Dosage: 900 MG, EVERY 6 MONTHS (12 PELLETS)
     Route: 058
     Dates: start: 20141201
  20. TESTOSTERONE CYPIONATE. [Suspect]
     Active Substance: TESTOSTERONE CYPIONATE
     Dosage: 200 MG, UNKNOWN
     Route: 065
     Dates: start: 20140623
  21. ANDRODERM [Suspect]
     Active Substance: TESTOSTERONE
     Indication: ANDROGEN REPLACEMENT THERAPY
     Dosage: 2.5 MG, UNKNOWN
     Route: 062
     Dates: start: 20120605
  22. ANDRODERM [Suspect]
     Active Substance: TESTOSTERONE
     Dosage: 2.5 MG, UNKNOWN
     Route: 062
     Dates: start: 20120526
  23. DEXAMETHASONE. [Concomitant]
     Active Substance: DEXAMETHASONE
     Indication: PRODUCT USED FOR UNKNOWN INDICATION
     Dosage: UNK UNKNOWN, UNKNOWN
     Route: 065
  24. SEROQUEL [Concomitant]
     Active Substance: QUETIAPINE FUMARATE
     Indication: PRODUCT USED FOR UNKNOWN INDICATION
     Dosage: UNK UNKNOWN, UNKNOWN
     Route: 065
  25. TESTOPEL [Suspect]
     Active Substance: TESTOSTERONE
     Dosage: 750 MG, EVERY 6 MONTHS (10 PELLETS)
     Route: 058
     Dates: start: 20130308, end: 201510
  26. TESTOPEL [Suspect]
     Active Substance: TESTOSTERONE
     Dosage: 900 MG, EVERY 6 MONTHS (12 PELLETS)
     Route: 058
     Dates: start: 20130827
  27. AXIRON [Suspect]
     Active Substance: TESTOSTERONE
     Dosage: 32 MG, DAILY
     Route: 061
     Dates: start: 20120525, end: 20120807
  28. TRIAMCINOLONE [Concomitant]
     Active Substance: TRIAMCINOLONE
     Indication: PRODUCT USED FOR UNKNOWN INDICATION
     Dosage: UNK UNKNOWN, UNKNOWN
     Route: 065
  29. PROMETHAZINE [Concomitant]
     Active Substance: PROMETHAZINE\PROMETHAZINE HYDROCHLORIDE
     Indication: PRODUCT USED FOR UNKNOWN INDICATION
     Dosage: UNK UNKNOWN, UNKNOWN
     Route: 065
  30. LOVENOX [Concomitant]
     Active Substance: ENOXAPARIN SODIUM
     Indication: PRODUCT USED FOR UNKNOWN INDICATION
     Dosage: UNK UNKNOWN, UNKNOWN
     Route: 065
  31. TESTOPEL [Suspect]
     Active Substance: TESTOSTERONE
     Indication: ANDROGEN REPLACEMENT THERAPY
     Dosage: UNK UNKNOWN, UNKNOWN
     Route: 058
     Dates: start: 2008
  32. TESTOPEL [Suspect]
     Active Substance: TESTOSTERONE
     Dosage: 750 MG, EVERY 6 MONTHS (10 PELLETS)
     Route: 058
     Dates: start: 20140123
  33. TESTOPEL [Suspect]
     Active Substance: TESTOSTERONE
     Dosage: 900 MG, EVERY 6 MONTHS (12 PELLETS)
     Route: 058
     Dates: start: 20140905
  34. DELATESTRYL [Suspect]
     Active Substance: TESTOSTERONE ENANTHATE
     Dosage: UNK UNKNOWN, UNKNOWN
     Route: 030
     Dates: start: 20140623
  35. ANDROGEL [Suspect]
     Active Substance: TESTOSTERONE
     Indication: ANDROGEN REPLACEMENT THERAPY
     Dosage: UNK UNKNOWN, DAILY
     Route: 065
     Dates: start: 20120711, end: 20121209
  36. ATORVASTATIN [Concomitant]
     Active Substance: ATORVASTATIN
     Indication: PRODUCT USED FOR UNKNOWN INDICATION
     Dosage: UNK UNKNOWN, UNKNOWN
     Route: 065

REACTIONS (5)
  - Aneurysm [Not Recovered/Not Resolved]
  - Cerebrovascular accident [Not Recovered/Not Resolved]
  - Cerebrovascular accident [Not Recovered/Not Resolved]
  - Device expulsion [Unknown]
  - Prescribed overdose [Unknown]

NARRATIVE: CASE EVENT DATE: 2012
